FAERS Safety Report 5744304-9 (Version None)
Quarter: 2008Q2

REPORT INFORMATION
  Report Type: 
  Country: None (occurrence: None)
  Receive Date: 20080516
  Receipt Date: 20080516
  Transmission Date: 20081010
  Serious: Yes (Life-Threatening, Hospitalization, Disabling)
  Sender: FDA-Public Use
  Company Number: None

PATIENT
  Age: 45 Year
  Sex: Female
  Weight: 74.8435 kg

DRUGS (1)
  1. YAZ [Suspect]
     Indication: HORMONE THERAPY
     Dosage: ONE PILL PER DAY  DAILY PO
     Route: 048
     Dates: start: 20071120, end: 20080322

REACTIONS (5)
  - DEEP VEIN THROMBOSIS [None]
  - GROIN PAIN [None]
  - OEDEMA PERIPHERAL [None]
  - SKIN DISCOLOURATION [None]
  - THROMBOSIS IN DEVICE [None]
